FAERS Safety Report 8360678-7 (Version None)
Quarter: 2012Q2

REPORT INFORMATION
  Report Type: 
  Country: None (occurrence: None)
  Receive Date: 20120515
  Receipt Date: 20120503
  Transmission Date: 20120825
  Serious: Yes (Death, Hospitalization)
  Sender: FDA-Public Use
  Company Number: US-ACTELION-A-NJ2012-65271

PATIENT

DRUGS (1)
  1. TRACLEER [Suspect]
     Indication: PULMONARY ARTERIAL HYPERTENSION
     Dosage: UNK
     Route: 048
     Dates: start: 20020201, end: 20120409

REACTIONS (6)
  - DEATH [None]
  - HIP FRACTURE [None]
  - FLUID RETENTION [None]
  - CARDIAC DISORDER [None]
  - FALL [None]
  - INTESTINAL OBSTRUCTION [None]
